FAERS Safety Report 6166700-0 (Version None)
Quarter: 2009Q2

REPORT INFORMATION
  Report Type: 
  Country: None (occurrence: None)
  Receive Date: 20090424
  Receipt Date: 20090415
  Transmission Date: 20091009
  Serious: Yes (Hospitalization, Other)
  Sender: FDA-Public Use
  Company Number: US-PFIZER INC-2009187803

PATIENT
  Sex: Male
  Weight: 108.39 kg

DRUGS (14)
  1. NAPROXEN [Suspect]
     Indication: OSTEOARTHRITIS
     Dosage: UNK
     Route: 048
     Dates: start: 20071206, end: 20090311
  2. BLINDED *PLACEBO [Suspect]
     Indication: OSTEOARTHRITIS
     Dosage: UNK
     Route: 048
     Dates: start: 20071206, end: 20090311
  3. BLINDED CELECOXIB [Suspect]
     Indication: OSTEOARTHRITIS
     Dosage: UNK
     Route: 048
     Dates: start: 20071206, end: 20090311
  4. IBUPROFEN [Suspect]
     Indication: OSTEOARTHRITIS
     Dosage: UNK
     Route: 048
     Dates: start: 20071206, end: 20090311
  5. NAPROXEN [Suspect]
     Dosage: UNK
     Route: 048
     Dates: start: 20071206, end: 20090311
  6. NEXIUM [Concomitant]
     Indication: PROPHYLAXIS AGAINST GASTROINTESTINAL ULCER
     Dosage: 20 MG, 1X/DAY
     Route: 048
     Dates: start: 20071206, end: 20090311
  7. ACETYLSALICYLIC ACID [Concomitant]
     Dosage: UNK
     Route: 048
     Dates: start: 20071004
  8. VICODIN [Concomitant]
     Dosage: UNK
     Route: 048
     Dates: start: 19900902
  9. DOXAZOSIN [Concomitant]
     Dosage: UNK
     Route: 048
     Dates: start: 20061220
  10. CYCLOBENZAPRINE [Concomitant]
     Dosage: UNK
     Route: 048
     Dates: start: 20070529
  11. NASONEX [Concomitant]
     Dosage: UNK
     Route: 045
     Dates: start: 20070515
  12. GARLIC [Concomitant]
     Dosage: UNK
     Route: 048
     Dates: start: 20040101
  13. ATENOLOL [Concomitant]
     Dosage: UNK
     Route: 048
     Dates: start: 20000924
  14. DARVOCET-N 100 [Concomitant]
     Dosage: UNK
     Route: 048
     Dates: start: 20001202

REACTIONS (2)
  - CORONARY ARTERY STENOSIS [None]
  - HAEMATOMA [None]
